FAERS Safety Report 13404006 (Version 1)
Quarter: 2017Q2

REPORT INFORMATION
  Report Type: Spontaneous
  Country: GB (occurrence: GB)
  Receive Date: 20170405
  Receipt Date: 20170405
  Transmission Date: 20170830
  Serious: Yes (Life-Threatening)
  Sender: FDA-Public Use
  Company Number: GB-TORRENT-00015143

PATIENT
  Age: 68 Year
  Sex: Male
  Weight: 92 kg

DRUGS (22)
  1. CITALOPRAM [Concomitant]
     Active Substance: CITALOPRAM HYDROBROMIDE
  2. ATORVASTATIN [Concomitant]
     Active Substance: ATORVASTATIN
  3. LANTUS [Concomitant]
     Active Substance: INSULIN GLARGINE
  4. NEBIVOLOL. [Concomitant]
     Active Substance: NEBIVOLOL
  5. APIDRA [Concomitant]
     Active Substance: INSULIN GLULISINE
  6. EMPAGLIFLOZIN [Concomitant]
     Active Substance: EMPAGLIFLOZIN
  7. ACETYLSALICYLIC ACID/ASPIRIN [Concomitant]
  8. CILOSTAZOL. [Concomitant]
     Active Substance: CILOSTAZOL
  9. DONEPEZIL. [Concomitant]
     Active Substance: DONEPEZIL
  10. RAMIPRIL. [Concomitant]
     Active Substance: RAMIPRIL
  11. SIMVASTATIN. [Concomitant]
     Active Substance: SIMVASTATIN
  12. COCODAMOL [Concomitant]
     Active Substance: ACETAMINOPHEN\CODEINE PHOSPHATE
  13. PROCHLORPERAZINE. [Concomitant]
     Active Substance: PROCHLORPERAZINE
  14. GLICLAZIDE [Concomitant]
     Active Substance: GLICLAZIDE
  15. GLYCERYL TRINITRATE [Concomitant]
     Active Substance: NITROGLYCERIN
  16. SENNA [Concomitant]
     Active Substance: SENNA LEAF\SENNOSIDES\SENNOSIDES A AND B
  17. BETAHISTINE [Concomitant]
     Active Substance: BETAHISTINE
  18. GLUCOSE [Concomitant]
     Active Substance: DEXTROSE
  19. METFORMIN [Concomitant]
     Active Substance: METFORMIN HYDROCHLORIDE
  20. OMEPRAZOLE. [Concomitant]
     Active Substance: OMEPRAZOLE
  21. MEMANTINE HYDROCHLORIDE. [Suspect]
     Active Substance: MEMANTINE HYDROCHLORIDE
  22. ISOSORBIDE. [Concomitant]
     Active Substance: ISOSORBIDE

REACTIONS (2)
  - Suicidal ideation [Unknown]
  - Depression [Unknown]
